FAERS Safety Report 10017095 (Version 1)
Quarter: 2014Q1

REPORT INFORMATION
  Report Type: Spontaneous
  Country: IT (occurrence: IT)
  Receive Date: 20140318
  Receipt Date: 20140318
  Transmission Date: 20141002
  Serious: Yes (Hospitalization)
  Sender: FDA-Public Use
  Company Number: IT-ROCHE-1366539

PATIENT
  Age: 75 Year
  Sex: Male

DRUGS (7)
  1. LUCENTIS [Suspect]
     Indication: AGE-RELATED MACULAR DEGENERATION
     Route: 050
     Dates: start: 20140121
  2. LUCENTIS [Suspect]
     Indication: CHOLESTEROLOSIS BULBI
  3. TORVAST [Concomitant]
  4. METFORMIN [Concomitant]
     Route: 065
  5. ENAPREN [Concomitant]
  6. CARDIOASPIRIN [Concomitant]
  7. PLAVIX [Concomitant]

REACTIONS (1)
  - Acute coronary syndrome [Unknown]
